FAERS Safety Report 5246105-7 (Version None)
Quarter: 2007Q1

REPORT INFORMATION
  Report Type: 
  Country: None (occurrence: None)
  Receive Date: 20061201
  Receipt Date: 20060722
  Transmission Date: 20070707
  Serious: No
  Sender: FDA-Public Use
  Company Number: 2006PV018103

PATIENT
  Age: 75 Year
  Sex: Female
  Weight: 126.5536 kg

DRUGS (5)
  1. BYETTA [Suspect]
     Indication: DRUG USE FOR UNKNOWN INDICATION
     Dosage: 5 MCG;BID;SC
     Route: 058
     Dates: start: 20060712
  2. AMARYL [Concomitant]
  3. AVAPRO [Concomitant]
  4. WATER PILL [Concomitant]
  5. CHOLESTROL MEDICATION NOS [Concomitant]

REACTIONS (2)
  - BLOOD GLUCOSE INCREASED [None]
  - INJECTION SITE PAIN [None]
